FAERS Safety Report 5292124-4 (Version None)
Quarter: 2007Q2

REPORT INFORMATION
  Report Type: 
  Country: None (occurrence: None)
  Receive Date: 20070410
  Receipt Date: 20070404
  Transmission Date: 20071010
  Serious: Yes (Hospitalization)
  Sender: FDA-Public Use
  Company Number: US-GLAXOSMITHKLINE-A0638157A

PATIENT
  Age: 67 Year
  Sex: Female

DRUGS (11)
  1. COREG [Suspect]
     Dosage: 12.5MG TWICE PER DAY
     Route: 048
  2. COREG [Suspect]
     Dosage: 1TAB TWICE PER DAY
     Route: 048
     Dates: start: 20030101
  3. DIGOXIN [Concomitant]
  4. ALLOPURINOL [Concomitant]
  5. COUMADIN [Concomitant]
  6. ALDACTONE [Concomitant]
  7. TORSEMIDE [Concomitant]
  8. SLOW-K [Concomitant]
  9. SYNTHROID [Concomitant]
  10. ALBUTEROL [Concomitant]
  11. FLOVENT [Concomitant]

REACTIONS (5)
  - BRONCHITIS [None]
  - DYSPNOEA [None]
  - ILL-DEFINED DISORDER [None]
  - PHARMACEUTICAL PRODUCT COMPLAINT [None]
  - WHEEZING [None]
